FAERS Safety Report 18684887 (Version 1)
Quarter: 2020Q4

REPORT INFORMATION
  Report Type: Report from Study
  Country: CA (occurrence: CA)
  Receive Date: 20201230
  Receipt Date: 20201230
  Transmission Date: 20210114
  Serious: Yes (Hospitalization, Other)
  Sender: FDA-Public Use
  Company Number: CA-BIOGEN-2020BI00909391

PATIENT
  Age: 63 Year
  Sex: Female

DRUGS (4)
  1. TYSABRI [Suspect]
     Active Substance: NATALIZUMAB
     Route: 042
     Dates: start: 20200130
  2. TYSABRI [Suspect]
     Active Substance: NATALIZUMAB
     Indication: MULTIPLE SCLEROSIS
     Route: 042
     Dates: start: 20130128, end: 20190522
  3. XARELTO [Concomitant]
     Active Substance: RIVAROXABAN
     Indication: PRODUCT USED FOR UNKNOWN INDICATION
     Route: 065
  4. TYSABRI [Suspect]
     Active Substance: NATALIZUMAB
     Route: 042
     Dates: start: 20190522, end: 20200130

REACTIONS (10)
  - Heart rate decreased [Recovered/Resolved]
  - Cardiac arrest [Recovered/Resolved]
  - Hypersomnia [Unknown]
  - Osteoarthritis [Recovered/Resolved]
  - Blood pressure decreased [Recovered/Resolved]
  - Mobility decreased [Unknown]
  - Fatigue [Unknown]
  - Urinary retention postoperative [Unknown]
  - Prescribed underdose [Recovered/Resolved]
  - Urinary incontinence [Unknown]

NARRATIVE: CASE EVENT DATE: 202012
